FAERS Safety Report 5522326-0 (Version None)
Quarter: 2007Q4

REPORT INFORMATION
  Report Type: 
  Country: None (occurrence: None)
  Receive Date: 20071120
  Receipt Date: 20071112
  Transmission Date: 20080405
  Serious: Yes (Death, Hospitalization)
  Sender: FDA-Public Use
  Company Number: US-ASTRAZENECA-2007UW25855

PATIENT
  Age: 31030 Day
  Sex: Male
  Weight: 71.8 kg

DRUGS (14)
  1. SYMBICORT [Suspect]
     Dosage: 160/4.5, 2 PUFFS BID
     Route: 055
     Dates: start: 20070927
  2. VICODIN [Concomitant]
     Indication: PAIN
     Dosage: 1 PO Q6-8H PRN
     Route: 048
  3. SYNTHROID [Concomitant]
     Indication: HYPOTHYROIDISM
     Route: 048
  4. ATROVENT [Concomitant]
     Dosage: .2 MG/ML QID
  5. ALBUTEROL [Concomitant]
     Dosage: .83 MG/ML QID
  6. PROVENTIL [Concomitant]
     Dosage: 1 PUFF PO QID
     Route: 048
  7. ALLEGRA D 24 HOUR [Concomitant]
     Dosage: 240/180 MG
     Route: 048
  8. NASACORT [Concomitant]
     Dosage: 2 SPRAYS, BID
     Route: 055
  9. LASIX [Concomitant]
     Route: 048
  10. OXYGEN [Concomitant]
     Dosage: 2 L NC
  11. CADUET [Concomitant]
     Route: 048
  12. LACTULOSE [Concomitant]
  13. PROTONIX [Concomitant]
     Route: 048
  14. CELLULOSE [Concomitant]
     Dosage: 10/15 ML PO EVERY OTHER DAY
     Route: 048

REACTIONS (5)
  - ANAEMIA [None]
  - CARDIO-RESPIRATORY ARREST [None]
  - MELAENA [None]
  - MENTAL STATUS CHANGES [None]
  - TROPONIN INCREASED [None]
